FAERS Safety Report 5143433-0 (Version None)
Quarter: 2006Q4

REPORT INFORMATION
  Report Type: 
  Country: None (occurrence: None)
  Receive Date: 20061103
  Receipt Date: 20060614
  Transmission Date: 20070319
  Serious: Yes (Hospitalization)
  Sender: FDA-Public Use
  Company Number: FR-MERCK-0606FRA00027

PATIENT
  Age: 53 Year
  Sex: Female

DRUGS (9)
  1. NOROXIN [Suspect]
     Indication: CYSTITIS
     Route: 048
     Dates: start: 20060304, end: 20060312
  2. ERYTHROMYCIN STEARATE [Concomitant]
     Route: 042
     Dates: start: 20060309, end: 20060310
  3. LOPRAZOLAM MESYLATE [Concomitant]
     Route: 065
     Dates: start: 20030101
  4. CLONAZEPAM [Concomitant]
     Route: 065
     Dates: start: 20051001
  5. INDORAMIN HYDROCHLORIDE [Concomitant]
     Route: 065
     Dates: start: 20030101
  6. GABAPENTIN [Concomitant]
     Route: 065
     Dates: start: 20020101
  7. OMEPRAZOLE [Concomitant]
     Route: 065
     Dates: start: 20030101
  8. ANETHOLE TRITHIONE [Concomitant]
     Route: 065
     Dates: start: 20030101
  9. TETRAZEPAM [Suspect]
     Route: 048
     Dates: start: 20060105, end: 20060615

REACTIONS (4)
  - EOSINOPHIL COUNT INCREASED [None]
  - LYMPHADENOPATHY [None]
  - PYREXIA [None]
  - RASH SCARLATINIFORM [None]
